FAERS Safety Report 6505509-2 (Version None)
Quarter: 2009Q4

REPORT INFORMATION
  Report Type: 
  Country: None (occurrence: None)
  Receive Date: 20091218
  Receipt Date: 20091207
  Transmission Date: 20100525
  Serious: Yes (Other)
  Sender: FDA-Public Use
  Company Number: JP-PFIZER INC-2009309900

PATIENT
  Age: 31 Year
  Sex: Female

DRUGS (2)
  1. ZOLOFT [Suspect]
     Dosage: 50MG DAILY
     Route: 048
     Dates: start: 20090901
  2. CERCINE [Concomitant]
     Dosage: UNK

REACTIONS (1)
  - CHROMATURIA [None]
